FAERS Safety Report 7597838-9 (Version None)
Quarter: 2011Q3

REPORT INFORMATION
  Report Type: 
  Country: None (occurrence: None)
  Receive Date: 20110708
  Receipt Date: 20110704
  Transmission Date: 20111222
  Serious: Yes (Other)
  Sender: FDA-Public Use
  Company Number: HU-PFIZER INC-2011149704

PATIENT
  Age: 51 Year
  Sex: Male
  Weight: 78 kg

DRUGS (5)
  1. NOOTROPIL [Concomitant]
     Dosage: UNK
     Dates: start: 20000101
  2. TRAMADOL HCL [Concomitant]
     Dosage: UNK
     Dates: start: 20000101
  3. LYRICA [Suspect]
     Indication: NEURALGIA
     Dosage: 75 MG IN THE MORNING AND 150 MG IN THE EVENING
     Dates: start: 20110416, end: 20110502
  4. CAVINTON [Concomitant]
     Dosage: UNK
     Dates: start: 20000101
  5. DIPANKRIN [Concomitant]
     Dosage: UNK
     Dates: start: 20000101

REACTIONS (5)
  - EPILEPTIC AURA [None]
  - MUSCLE SPASMS [None]
  - TREMOR [None]
  - NODULE [None]
  - DISCOMFORT [None]
